FAERS Safety Report 19264412 (Version 1)
Quarter: 2021Q2

REPORT INFORMATION
  Report Type: Spontaneous
  Country: US (occurrence: US)
  Receive Date: 20210515
  Receipt Date: 20210515
  Transmission Date: 20210717
  Serious: No
  Sender: FDA-Public Use
  Company Number: None

PATIENT
  Age: 3 Year
  Sex: Female
  Weight: 12.6 kg

DRUGS (2)
  1. LEUKINE [Suspect]
     Active Substance: SARGRAMOSTIM
     Dates: end: 20210510
  2. DINUTUXIMAB (CHIMERIC MONOCLONAL ANTIBODY 14.18) [Suspect]
     Active Substance: DINUTUXIMAB
     Dates: end: 20210510

REACTIONS (3)
  - Mitral valve disease [None]
  - Tricuspid valve incompetence [None]
  - Pericardial effusion [None]

NARRATIVE: CASE EVENT DATE: 20210511
